FAERS Safety Report 5626085-2 (Version None)
Quarter: 2008Q1

REPORT INFORMATION
  Report Type: 
  Country: None (occurrence: None)
  Receive Date: 20080214
  Receipt Date: 20080131
  Transmission Date: 20080703
  Serious: Yes (Other)
  Sender: FDA-Public Use
  Company Number: FI-AMGEN-UK263925

PATIENT
  Sex: Female
  Weight: 54 kg

DRUGS (5)
  1. ARANESP [Suspect]
     Indication: RENAL FAILURE CHRONIC
     Route: 058
     Dates: start: 20050901
  2. AZATIOPRIN [Concomitant]
     Route: 048
     Dates: start: 19970527
  3. KALCIPOS-D [Concomitant]
     Route: 048
     Dates: start: 20060130
  4. LABETALOL HCL [Concomitant]
     Route: 048
     Dates: start: 20070328, end: 20070711
  5. CLEXANE [Concomitant]
     Route: 058
     Dates: start: 20071001, end: 20080123

REACTIONS (4)
  - GLOMERULAR FILTRATION RATE DECREASED [None]
  - INFECTION [None]
  - PROTEINURIA [None]
  - RETAINED PLACENTA OR MEMBRANES [None]
